FAERS Safety Report 7267136-1 (Version None)
Quarter: 2011Q1

REPORT INFORMATION
  Report Type: 
  Country: None (occurrence: None)
  Receive Date: 20110121
  Receipt Date: 20110109
  Transmission Date: 20110831
  Serious: Yes (Other)
  Sender: FDA-Public Use
  Company Number: 2011000168

PATIENT
  Age: 57 Year
  Sex: Female

DRUGS (2)
  1. TARCEVA [Suspect]
     Indication: PANCREATIC CARCINOMA
     Dosage: (MG),ORAL
     Route: 048
     Dates: start: 20100401, end: 20101001
  2. GEMCITABINE [Concomitant]

REACTIONS (5)
  - ILL-DEFINED DISORDER [None]
  - LIVER INJURY [None]
  - CEREBRAL ISCHAEMIA [None]
  - APHASIA [None]
  - GASTROINTESTINAL OBSTRUCTION [None]
